FAERS Safety Report 4932140-2 (Version None)
Quarter: 2006Q1

REPORT INFORMATION
  Report Type: 
  Country: None (occurrence: None)
  Receive Date: 20060303
  Receipt Date: 20060202
  Transmission Date: 20060701
  Serious: Yes (Disabling)
  Sender: FDA-Public Use
  Company Number: US-ROCHE-435186

PATIENT
  Age: 49 Year
  Sex: Male
  Weight: 96.2 kg

DRUGS (4)
  1. PEGASYS [Suspect]
     Indication: HEPATITIS C
     Route: 058
     Dates: start: 20040727, end: 20041019
  2. PEGASYS [Suspect]
     Route: 058
     Dates: start: 20041020, end: 20050622
  3. COPEGUS [Suspect]
     Indication: HEPATITIS C
     Route: 048
     Dates: start: 20040727, end: 20041019
  4. COPEGUS [Suspect]
     Route: 048
     Dates: start: 20041020, end: 20050628

REACTIONS (8)
  - AMNESIA [None]
  - BRADYPHRENIA [None]
  - CEREBRAL ATROPHY [None]
  - CONDITION AGGRAVATED [None]
  - FATIGUE [None]
  - FEELING ABNORMAL [None]
  - ILL-DEFINED DISORDER [None]
  - NEUTROPENIA [None]
